FAERS Safety Report 6537725-8 (Version None)
Quarter: 2010Q1

REPORT INFORMATION
  Report Type: 
  Country: None (occurrence: None)
  Receive Date: 20100111
  Receipt Date: 20091228
  Transmission Date: 20100710
  Serious: Yes (Other)
  Sender: FDA-Public Use
  Company Number: DE-GDP-09407251

PATIENT

DRUGS (1)
  1. METVIX                (METHYL AMIONLEVULINATE HYDROCHLORIDE) 16 % [Suspect]
     Dosage: (TOPICAL)
     Route: 061

REACTIONS (1)
  - VITREOUS DETACHMENT [None]
